FAERS Safety Report 6430710-6 (Version None)
Quarter: 2009Q4

REPORT INFORMATION
  Report Type: 
  Country: None (occurrence: None)
  Receive Date: 20091106
  Receipt Date: 20091030
  Transmission Date: 20100525
  Serious: Yes (Hospitalization)
  Sender: FDA-Public Use
  Company Number: NL-ASTRAZENECA-2009SE12853

PATIENT
  Age: 25648 Day
  Sex: Female

DRUGS (3)
  1. ARIMIDEX [Suspect]
     Indication: BREAST CANCER
     Route: 048
     Dates: start: 20090309, end: 20090905
  2. ALENDRONIC ACID [Concomitant]
     Indication: OSTEOPENIA
     Route: 048
     Dates: start: 20070201
  3. CARBASALATE CALCIUM [Concomitant]
     Indication: ARTERIOSCLEROSIS
     Route: 048
     Dates: start: 20040101

REACTIONS (1)
  - ARTERIAL STENOSIS LIMB [None]
